FAERS Safety Report 12448016 (Version 1)
Quarter: 2016Q2

REPORT INFORMATION
  Report Type: Spontaneous
  Country: US (occurrence: US)
  Receive Date: 20160608
  Receipt Date: 20160608
  Transmission Date: 20160815
  Serious: No
  Sender: FDA-Public Use
  Company Number: US-PFIZER INC-2016286007

PATIENT
  Age: 45 Year
  Sex: Male
  Weight: 104.33 kg

DRUGS (1)
  1. VIAGRA [Suspect]
     Active Substance: SILDENAFIL CITRATE
     Indication: ERECTILE DYSFUNCTION
     Dosage: 150MG, TABLET, ORALLY, ONCE A DAY
     Route: 048
     Dates: start: 201512

REACTIONS (2)
  - Erection increased [Unknown]
  - Semen volume increased [Unknown]

NARRATIVE: CASE EVENT DATE: 20160320
